FAERS Safety Report 8459844-1 (Version None)
Quarter: 2012Q2

REPORT INFORMATION
  Report Type: 
  Country: None (occurrence: None)
  Receive Date: 20120622
  Receipt Date: 20120614
  Transmission Date: 20120825
  Serious: Yes (Hospitalization)
  Sender: FDA-Public Use
  Company Number: PHHY2012JP042028

PATIENT
  Age: 59 Year
  Sex: Male

DRUGS (9)
  1. MUCOSTA [Suspect]
     Indication: SCIATICA
     Route: 048
  2. VITAMIN B12 [Suspect]
     Indication: SCIATICA
     Route: 048
  3. NEUROTROPIN [Suspect]
     Indication: SCIATICA
     Route: 048
  4. TOKISHIGYAKUKAGOSHUYUSHOKYOTO [Concomitant]
     Indication: SCIATICA
  5. RINLAXER [Suspect]
     Indication: SCIATICA
     Route: 048
  6. OPALMON [Suspect]
     Indication: SCIATICA
     Route: 048
  7. SYAKUYAKUKANZOTO [Suspect]
     Indication: SCIATICA
     Route: 048
  8. TEGRETOL [Suspect]
     Indication: SCIATICA
     Dosage: 200 MG, DAILY
     Route: 048
     Dates: start: 20110615, end: 20110905
  9. VOLTAREN [Suspect]
     Indication: SCIATICA
     Dosage: 25 MG, DAILY
     Route: 048
     Dates: start: 20110615, end: 20110905

REACTIONS (15)
  - PAPULE [None]
  - LYMPHADENOPATHY [None]
  - WHITE BLOOD CELL COUNT INCREASED [None]
  - OEDEMA [None]
  - LYMPHOCYTIC INFILTRATION [None]
  - DRUG RASH WITH EOSINOPHILIA AND SYSTEMIC SYMPTOMS [None]
  - EPIDERMAL NECROSIS [None]
  - LIVER DISORDER [None]
  - PYREXIA [None]
  - FACE OEDEMA [None]
  - LYMPHOCYTE STIMULATION TEST POSITIVE [None]
  - GENERALISED ERYTHEMA [None]
  - FLUSHING [None]
  - EXTRAVASATION BLOOD [None]
  - HUMAN HERPESVIRUS 6 INFECTION [None]
